FAERS Safety Report 22365446 (Version 1)
Quarter: 2023Q2

REPORT INFORMATION
  Report Type: Report from Study
  Country: DE (occurrence: DE)
  Receive Date: 20230525
  Receipt Date: 20230525
  Transmission Date: 20230721
  Serious: Yes (Other)
  Sender: FDA-Public Use
  Company Number: DE-ABBVIE-5179459

PATIENT
  Age: 57 Year
  Sex: Female

DRUGS (1)
  1. RINVOQ [Suspect]
     Active Substance: UPADACITINIB
     Indication: Axial spondyloarthritis
     Route: 048

REACTIONS (7)
  - Cataract [Unknown]
  - Oral herpes [Unknown]
  - Upper respiratory tract infection [Recovered/Resolved]
  - Hypercholesterolaemia [Unknown]
  - Urticaria [Unknown]
  - Upper respiratory tract infection [Unknown]
  - Osteoarthritis [Unknown]

NARRATIVE: CASE EVENT DATE: 20220328
